FAERS Safety Report 8833875 (Version 1)
Quarter: 2012Q4

REPORT INFORMATION
  Report Type: 
  Country: US (occurrence: US)
  Receive Date: 20121010
  Receipt Date: 20121010
  Transmission Date: 20130627
  Serious: No
  Sender: FDA-Public Use
  Company Number: US-009507513-1210USA003437

PATIENT
  Age: 40 Year
  Sex: Male

DRUGS (6)
  1. SAPHRIS [Suspect]
     Indication: BIPOLAR DISORDER
     Dosage: 10 mg, qpm
     Route: 060
     Dates: start: 20120913, end: 20120918
  2. THORAZINE [Concomitant]
  3. GILENYA [Concomitant]
     Dosage: 5 mg, qd
  4. DEXTROMETHORPHAN HYDROBROMIDE (+) QUINIDINE SULFATE [Concomitant]
     Dosage: 20/10 mg, qd
  5. DEXILANT [Concomitant]
     Dosage: 60 mg, qd
  6. PROPRANOLOL HYDROCHLORIDE [Concomitant]
     Dosage: 80 mg, bid

REACTIONS (1)
  - Hiccups [Recovered/Resolved]
